FAERS Safety Report 7995670-5 (Version None)
Quarter: 2011Q4

REPORT INFORMATION
  Report Type: 
  Country: None (occurrence: None)
  Receive Date: 20111220
  Receipt Date: 20111209
  Transmission Date: 20120403
  Serious: Yes (Hospitalization)
  Sender: FDA-Public Use
  Company Number: US-BAYER-2011-034746

PATIENT
  Age: 22 Year
  Sex: Female
  Weight: 54.422 kg

DRUGS (18)
  1. YASMIN [Suspect]
     Indication: CONTRACEPTION
     Dosage: UNK
     Dates: start: 20030101, end: 20060101
  2. NITROFURANTOIN [Concomitant]
     Dosage: UNK
     Dates: start: 20030101, end: 20100101
  3. CLINDAMYCIN [Concomitant]
     Dosage: UNK
     Dates: start: 20030101, end: 20100101
  4. SULFAMETHOXAZOLE AND TRIMETHOPRIM [Concomitant]
     Dosage: UNK
     Dates: start: 20030101, end: 20100101
  5. PENICILLIN [Concomitant]
     Dosage: UNK
     Dates: start: 20030101, end: 20100101
  6. YAZ [Suspect]
     Indication: PREMENSTRUAL SYNDROME
  7. YASMIN [Suspect]
     Indication: PREMENSTRUAL SYNDROME
  8. CEPHALEXIN [Concomitant]
     Dosage: UNK
     Dates: start: 20030101, end: 20100101
  9. YAZ [Suspect]
     Indication: CONTRACEPTION
     Dosage: UNK
     Dates: start: 20060901, end: 20070601
  10. LEVAQUIN [Concomitant]
     Dosage: UNK
     Dates: start: 20030101, end: 20100101
  11. AZITHROMYCIN [Concomitant]
     Dosage: UNK
     Dates: start: 20030101, end: 20100101
  12. NOROXIN [Concomitant]
     Dosage: UNK
     Dates: start: 20030101, end: 20100101
  13. LEXAPRO [Concomitant]
     Indication: DEPRESSION
     Dosage: UNK
     Dates: start: 20070101, end: 20080101
  14. ALBUTEROL [Concomitant]
     Dosage: 0.09 MG, UNK
     Dates: start: 20070326
  15. CIPROFLOXACIN HCL [Concomitant]
     Dosage: UNK
     Dates: start: 20030101, end: 20100101
  16. SULFAMETHOXAZOLE AND TRIMETHOPRIM [Concomitant]
     Dosage: UNK
     Dates: start: 20030101, end: 20100101
  17. PREDNISONE TAB [Concomitant]
     Dosage: 20 MG, UNK
     Dates: start: 20070326
  18. AMOXICILLIN AND CLAVULANATE POTASSIUM [Concomitant]
     Dosage: UNK
     Dates: start: 20030101, end: 20100101

REACTIONS (7)
  - PULMONARY EMBOLISM [None]
  - PANIC DISORDER [None]
  - DEPRESSION [None]
  - PAIN [None]
  - ATTENTION DEFICIT/HYPERACTIVITY DISORDER [None]
  - ANXIETY [None]
  - EMOTIONAL DISTRESS [None]
